FAERS Safety Report 24550326 (Version 2)
Quarter: 2025Q1

REPORT INFORMATION
  Report Type: Report from Study
  Country: US (occurrence: US)
  Receive Date: 20241025
  Receipt Date: 20250205
  Transmission Date: 20250408
  Serious: No
  Sender: SUNOVION
  Company Number: US-SUMITOMO PHARMA SWITZERLAND GMBH-2024SPA004205

PATIENT

DRUGS (2)
  1. ORGOVYX [Suspect]
     Active Substance: RELUGOLIX
     Indication: Prostate cancer
     Dosage: 120 MG, QD (MAITAINANCE DOSE)
     Route: 048
     Dates: start: 20231025
  2. NUBEQA [Suspect]
     Active Substance: DAROLUTAMIDE
     Indication: Prostate cancer
     Dosage: 600 MG, QD
     Route: 048
     Dates: start: 20231212

REACTIONS (10)
  - Memory impairment [Unknown]
  - Gastrointestinal disorder [Unknown]
  - Fall [Unknown]
  - Sacral pain [Unknown]
  - Mood altered [Recovering/Resolving]
  - Arthralgia [Unknown]
  - Depression [Recovering/Resolving]
  - Myalgia [Unknown]
  - Hot flush [Unknown]
  - Incorrect dose administered [Unknown]
